FAERS Safety Report 6637209-2 (Version None)
Quarter: 2010Q1

REPORT INFORMATION
  Report Type: 
  Country: None (occurrence: None)
  Receive Date: 20100310
  Receipt Date: 20100225
  Transmission Date: 20100710
  Serious: Yes (Other)
  Sender: FDA-Public Use
  Company Number: 8045224

PATIENT
  Sex: Male

DRUGS (12)
  1. CERTOLIZUMAB PEGOL (CERTOLIZUMAB PEGOL) [Suspect]
     Indication: RHEUMATOID ARTHRITIS
     Dosage: SEE IMAGE
     Route: 042
     Dates: start: 20050829, end: 20060817
  2. CERTOLIZUMAB PEGOL (CERTOLIZUMAB PEGOL) [Suspect]
     Indication: RHEUMATOID ARTHRITIS
     Dosage: SEE IMAGE
     Route: 042
     Dates: start: 20060831, end: 20080214
  3. CERTOLIZUMAB PEGOL (CERTOLIZUMAB PEGOL) [Suspect]
     Indication: RHEUMATOID ARTHRITIS
     Dosage: SEE IMAGE
     Route: 042
     Dates: start: 20080214, end: 20090409
  4. METHOTREXATE [Concomitant]
  5. FOLIC ACID [Concomitant]
  6. PRONOVAN [Concomitant]
  7. MADOPAR [Concomitant]
  8. OMEPRAZOLE [Concomitant]
  9. EGILOK [Concomitant]
  10. DICLOFENAC [Concomitant]
  11. CEFUROXIME [Concomitant]
  12. AMIKACIN [Concomitant]

REACTIONS (13)
  - CONDITION AGGRAVATED [None]
  - EMPHYSEMA [None]
  - GASTRITIS EROSIVE [None]
  - LYMPHADENOPATHY [None]
  - PARKINSON'S DISEASE [None]
  - PLEURISY [None]
  - PNEUMONIA [None]
  - PROSTATIC ADENOMA [None]
  - PULMONARY FIBROSIS [None]
  - RENAL CYST [None]
  - RESPIRATORY TRACT INFECTION VIRAL [None]
  - RHEUMATOID ARTHRITIS [None]
  - SUPRAVENTRICULAR TACHYCARDIA [None]
